FAERS Safety Report 24613572 (Version 2)
Quarter: 2024Q4

REPORT INFORMATION
  Report Type: Report from Study
  Country: CO (occurrence: CO)
  Receive Date: 20241113
  Receipt Date: 20241212
  Transmission Date: 20250115
  Serious: Yes (Death, Other)
  Sender: UCB
  Company Number: CO-UCBSA-2024057928

PATIENT
  Sex: Male

DRUGS (4)
  1. LACOSAMIDE [Suspect]
     Active Substance: LACOSAMIDE
     Indication: Epilepsy
     Dosage: 200 MILLIGRAM, 2X/DAY (BID)
     Route: 048
     Dates: start: 20240312, end: 20240922
  2. BRIVARACETAM [Suspect]
     Active Substance: BRIVARACETAM
     Indication: Epilepsy
     Dosage: 100 MILLIGRAM, EV 12 HRS
  3. CLONAZEPAM [Concomitant]
     Active Substance: CLONAZEPAM
     Indication: Epilepsy
     Dosage: 2.5 MILLIGRAM, ONCE DAILY (QD)
  4. OLANZAPINE [Concomitant]
     Active Substance: OLANZAPINE
     Indication: Epilepsy
     Dosage: 10 MILLIGRAM, 2X/DAY (BID)

REACTIONS (8)
  - Respiratory arrest [Fatal]
  - Pneumonia aspiration [Unknown]
  - Seizure [Unknown]
  - Suspiciousness [Unknown]
  - Aggression [Unknown]
  - Insomnia [Unknown]
  - Vomiting [Unknown]
  - Psychogenic seizure [Unknown]

NARRATIVE: CASE EVENT DATE: 20240101
